FAERS Safety Report 9289593 (Version 1)
Quarter: 2013Q2

REPORT INFORMATION
  Report Type: Spontaneous
  Country: US (occurrence: US)
  Receive Date: 20130515
  Receipt Date: 20130515
  Transmission Date: 20140414
  Serious: Yes (Hospitalization)
  Sender: FDA-Public Use
  Company Number: US-AMGEN-USASP2013033106

PATIENT
  Sex: Female

DRUGS (2)
  1. PROLIA [Suspect]
     Indication: OSTEOPOROSIS POSTMENOPAUSAL
     Dosage: UNK
     Dates: start: 20130422
  2. VITAMIN D /00107901/ [Concomitant]
     Dosage: 50000 IU, UNK

REACTIONS (2)
  - Paraesthesia [Unknown]
  - Blood calcium decreased [Recovering/Resolving]
